FAERS Safety Report 9220981 (Version 2)
Quarter: 2013Q2

REPORT INFORMATION
  Report Type: Spontaneous
  Country: JP (occurrence: JP)
  Receive Date: 20130409
  Receipt Date: 20130419
  Transmission Date: 20140414
  Serious: Yes (Hospitalization)
  Sender: FDA-Public Use
  Company Number: PHHY2013JP033805

PATIENT
  Age: 50 Year
  Sex: Male

DRUGS (5)
  1. DOCETAXEL [Suspect]
     Indication: TONSIL CANCER
     Dosage: 80 MG, UNK
     Dates: start: 201003
  2. DOCETAXEL [Suspect]
     Indication: OESOPHAGEAL CARCINOMA
  3. NEDAPLATIN [Suspect]
     Indication: TONSIL CANCER
     Dosage: 80 MG, UNK
     Dates: start: 201003
  4. NEDAPLATIN [Suspect]
     Indication: OESOPHAGEAL CARCINOMA
  5. RADIOTHERAPY [Concomitant]

REACTIONS (9)
  - Pneumatosis intestinalis [Recovered/Resolved]
  - Malnutrition [Recovered/Resolved]
  - Diarrhoea [Recovered/Resolved]
  - Pyrexia [Recovered/Resolved]
  - Leukopenia [Recovered/Resolved]
  - Neutropenia [Recovered/Resolved]
  - Vomiting [Recovered/Resolved]
  - Gastrointestinal sounds abnormal [Recovered/Resolved]
  - Anaemia [Recovered/Resolved]
